FAERS Safety Report 25803041 (Version 1)
Quarter: 2025Q3

REPORT INFORMATION
  Report Type: Spontaneous
  Country: US (occurrence: US)
  Receive Date: 20250915
  Receipt Date: 20250915
  Transmission Date: 20251021
  Serious: No
  Sender: SAREPTA THERAPEUTICS
  Company Number: US-SAREPTA THERAPEUTICS INC.-SRP2025-006053

PATIENT
  Age: 21 Year
  Sex: Male

DRUGS (2)
  1. VYONDYS 53 [Suspect]
     Active Substance: GOLODIRSEN
     Indication: Product used for unknown indication
     Route: 042
     Dates: end: 202505
  2. VYONDYS 53 [Suspect]
     Active Substance: GOLODIRSEN
     Route: 042
     Dates: start: 20250530

REACTIONS (1)
  - Dermatitis [Recovered/Resolved]

NARRATIVE: CASE EVENT DATE: 20250528
